FAERS Safety Report 19797293 (Version 6)
Quarter: 2022Q4

REPORT INFORMATION
  Report Type: Report from Study
  Country: JP (occurrence: JP)
  Receive Date: 20210901
  Receipt Date: 20221225
  Transmission Date: 20230113
  Serious: Yes (Hospitalization, Other)
  Sender: FDA-Public Use
  Company Number: JP-TAKEDA-2021TJP073403

PATIENT
  Age: 8 Year
  Sex: Male
  Weight: 20 kg

DRUGS (32)
  1. TEDUGLUTIDE [Suspect]
     Active Substance: TEDUGLUTIDE
     Indication: Short-bowel syndrome
     Dosage: 1 MILLIGRAM, QD
     Route: 050
     Dates: start: 20210806, end: 20210807
  2. TEDUGLUTIDE [Suspect]
     Active Substance: TEDUGLUTIDE
     Indication: Short-bowel syndrome
     Dosage: 1 MILLIGRAM, QD
     Route: 050
     Dates: start: 20210806, end: 20210807
  3. TEDUGLUTIDE [Suspect]
     Active Substance: TEDUGLUTIDE
     Indication: Short-bowel syndrome
     Dosage: 1 MILLIGRAM, QD
     Route: 050
     Dates: start: 20210806, end: 20210807
  4. TEDUGLUTIDE [Suspect]
     Active Substance: TEDUGLUTIDE
     Indication: Short-bowel syndrome
     Dosage: 1 MILLIGRAM, QD
     Route: 050
     Dates: start: 20210806, end: 20210807
  5. TEDUGLUTIDE [Suspect]
     Active Substance: TEDUGLUTIDE
     Dosage: UNK
     Route: 065
     Dates: start: 20211119
  6. TEDUGLUTIDE [Suspect]
     Active Substance: TEDUGLUTIDE
     Dosage: UNK
     Route: 065
     Dates: start: 20211119
  7. TEDUGLUTIDE [Suspect]
     Active Substance: TEDUGLUTIDE
     Dosage: UNK
     Route: 065
     Dates: start: 20211119
  8. TEDUGLUTIDE [Suspect]
     Active Substance: TEDUGLUTIDE
     Dosage: UNK
     Route: 065
     Dates: start: 20211119
  9. GLUTATHIONE [Concomitant]
     Active Substance: GLUTATHIONE
     Indication: Short-bowel syndrome
     Dosage: 100 MILLIGRAM, BID
     Route: 048
  10. GLUTAMINE [Concomitant]
     Active Substance: GLUTAMINE
     Indication: Short-bowel syndrome
     Dosage: 5 GRAM, BID
     Route: 048
  11. GASTER [Concomitant]
     Active Substance: FAMOTIDINE
     Indication: Short-bowel syndrome
     Dosage: 10 MILLIGRAM, BID
     Route: 048
  12. LANSOPRAZOLE [Concomitant]
     Active Substance: LANSOPRAZOLE
     Indication: Short-bowel syndrome
     Dosage: 7.5 MILLIGRAM, BID
     Route: 048
  13. URSO [Concomitant]
     Active Substance: URSODIOL
     Indication: Short-bowel syndrome
     Dosage: 50 MILLIGRAM, BID
     Route: 048
  14. MIYA-BM [Concomitant]
     Active Substance: CLOSTRIDIUM BUTYRICUM SPORES STRAIN M-55
     Indication: Short-bowel syndrome
     Dosage: 0.5 GRAM, BID
     Route: 048
  15. Marzulene es [Concomitant]
     Indication: Short-bowel syndrome
     Dosage: 1 GRAM, BID
     Route: 048
  16. HERBALS [Concomitant]
     Active Substance: HERBALS
     Indication: Short-bowel syndrome
     Dosage: 0.333 DOSAGE FORM, TID
     Route: 048
  17. HERBALS [Concomitant]
     Active Substance: HERBALS
     Indication: Short-bowel syndrome
     Dosage: 0.333 DOSAGE FORM, TID
     Route: 048
  18. LOPEMIN [Concomitant]
     Indication: Diarrhoea
     Dosage: 1 MILLIGRAM, TID
     Route: 048
  19. LOPEMIN [Concomitant]
     Indication: Short-bowel syndrome
  20. DIETARY SUPPLEMENT\UBIDECARENONE [Concomitant]
     Active Substance: DIETARY SUPPLEMENT\UBIDECARENONE
     Indication: Short-bowel syndrome
     Dosage: 2.5 MILLIGRAM, BID
     Route: 048
  21. ENORAS [Concomitant]
     Indication: Short-bowel syndrome
     Dosage: 187.5 MILLILITER, QD
     Route: 065
  22. KANAMYCIN SULFATE [Concomitant]
     Active Substance: KANAMYCIN SULFATE
     Indication: Short-bowel syndrome
     Dosage: 2 MILLILITER, QD
     Route: 065
  23. AMINO ACIDS\DEXTROSE\ELECTROLYTES NOS\MINERALS\VITAMINS [Concomitant]
     Active Substance: AMINO ACIDS\DEXTROSE\ELECTROLYTES NOS\MINERALS\VITAMINS
     Indication: Short-bowel syndrome
     Dosage: 1000 MILLILITER, BID
     Route: 041
  24. PLEAMIN P [Concomitant]
     Indication: Short-bowel syndrome
     Dosage: 200 MILLILITER, BID
     Route: 041
  25. SODIUM CHLORIDE [Concomitant]
     Active Substance: SODIUM CHLORIDE
     Indication: Short-bowel syndrome
     Dosage: 40 MILLILITER, BID
     Route: 041
  26. STRONGER NEO-MINOPHAGEN C [Concomitant]
     Active Substance: AMMONIUM GLYCYRRHIZATE\CYSTEINE HYDROCHLORIDE\GLYCINE
     Indication: Short-bowel syndrome
     Dosage: 20 MILLILITER, BID
     Route: 041
  27. LEVOCARNITINE [Concomitant]
     Active Substance: LEVOCARNITINE
     Indication: Short-bowel syndrome
     Dosage: UNK, BID
     Route: 041
  28. HEPARIN [Concomitant]
     Active Substance: HEPARIN SODIUM
     Indication: Short-bowel syndrome
     Dosage: 0.2 DOSAGE FORM, BID
     Route: 041
  29. ASELEND [Concomitant]
     Indication: Short-bowel syndrome
     Dosage: 0.5 DOSAGE FORM, BID
     Route: 041
  30. CYANOCOBALAMIN\PYRIDOXAMINE HYDROCHLORIDE\THIAMINE HYDROCHLORIDE [Concomitant]
     Active Substance: CYANOCOBALAMIN\PYRIDOXAMINE HYDROCHLORIDE\THIAMINE HYDROCHLORIDE
     Indication: Short-bowel syndrome
     Dosage: 1 DOSAGE FORM, QD
     Route: 041
  31. HEPARIN SODIUM [Concomitant]
     Active Substance: HEPARIN SODIUM
     Dosage: 5 MILLILITER, QD
     Route: 065
  32. SOYBEAN OIL [Concomitant]
     Active Substance: SOYBEAN OIL
     Dosage: 100 MILLILITER, QD
     Route: 065

REACTIONS (3)
  - Acidosis [Recovering/Resolving]
  - Acidosis [Recovering/Resolving]
  - Loss of consciousness [Recovered/Resolved]

NARRATIVE: CASE EVENT DATE: 20210808
